FAERS Safety Report 21247506 (Version 1)
Quarter: 2022Q3

REPORT INFORMATION
  Report Type: Spontaneous
  Country: PL (occurrence: PL)
  Receive Date: 20220824
  Receipt Date: 20220824
  Transmission Date: 20221026
  Serious: Yes (Hospitalization)
  Sender: FDA-Public Use
  Company Number: PL-SUN PHARMACEUTICAL INDUSTRIES LTD-2022RR-346351

PATIENT
  Age: 79 Year
  Sex: Female

DRUGS (4)
  1. PREGABALIN [Suspect]
     Active Substance: PREGABALIN
     Indication: Raynaud^s phenomenon
     Dosage: UNK
     Route: 065
  2. PENTOXIFYLLINE [Suspect]
     Active Substance: PENTOXIFYLLINE
     Indication: Raynaud^s phenomenon
     Dosage: UNK
     Route: 048
  3. SULODEXIDE [Suspect]
     Active Substance: SULODEXIDE
     Indication: Raynaud^s phenomenon
     Dosage: UNK
     Route: 065
  4. PENTOXIFYLLINE [Suspect]
     Active Substance: PENTOXIFYLLINE
     Indication: Raynaud^s phenomenon
     Dosage: UNK
     Route: 042

REACTIONS (2)
  - Disease progression [Unknown]
  - Pain [Unknown]
